FAERS Safety Report 4827353-4 (Version None)
Quarter: 2005Q4

REPORT INFORMATION
  Report Type: 
  Country: None (occurrence: None)
  Receive Date: 20051114
  Receipt Date: 20050909
  Transmission Date: 20060501
  Serious: Yes (Hospitalization)
  Sender: FDA-Public Use
  Company Number: US-MERCK-0509USA01179

PATIENT
  Age: 72 Year
  Sex: Male
  Weight: 72 kg

DRUGS (2)
  1. VIOXX [Suspect]
     Indication: ARTHRALGIA
     Route: 048
     Dates: start: 20020218, end: 20040701
  2. ALLOPURINOL [Concomitant]
     Route: 065

REACTIONS (7)
  - ATELECTASIS [None]
  - CARDIAC MURMUR [None]
  - CEREBROVASCULAR ACCIDENT [None]
  - DYSLIPIDAEMIA [None]
  - LOWER LIMB FRACTURE [None]
  - PULMONARY VASCULAR DISORDER [None]
  - TRANSIENT ISCHAEMIC ATTACK [None]
